FAERS Safety Report 6764081-2 (Version None)
Quarter: 2010Q2

REPORT INFORMATION
  Report Type: 
  Country: None (occurrence: None)
  Receive Date: 20100610
  Receipt Date: 20100601
  Transmission Date: 20101027
  Serious: Yes (Other)
  Sender: FDA-Public Use
  Company Number: NL-PFIZER INC-2010068843

PATIENT
  Age: 49 Year
  Sex: Female

DRUGS (11)
  1. LIPITOR [Suspect]
     Dosage: 40 MG, UNK
  2. SINGULAIR [Concomitant]
     Dosage: UNK
  3. PARIET [Concomitant]
     Dosage: UNK
  4. FOLINIC ACID [Concomitant]
     Dosage: UNK
  5. BUMETANIDE [Concomitant]
     Dosage: UNK
  6. DILTIAZEM HYDROCHLORIDE [Concomitant]
     Dosage: UNK
  7. ACENOCOUMAROL [Concomitant]
     Dosage: UNK
  8. SPIRIVA [Concomitant]
     Dosage: UNK
  9. PYRIDOXINE [Concomitant]
     Dosage: UNK
  10. SALBUTAMOL [Concomitant]
     Dosage: UNK
  11. SYMBICORT [Concomitant]

REACTIONS (2)
  - HYPERSENSITIVITY [None]
  - MALAISE [None]
